FAERS Safety Report 9493167 (Version 1)
Quarter: 2013Q3

REPORT INFORMATION
  Report Type: Spontaneous
  Country: US (occurrence: US)
  Receive Date: 20130902
  Receipt Date: 20130902
  Transmission Date: 20140515
  Serious: No
  Sender: FDA-Public Use
  Company Number: US-009507513-1309USA000101

PATIENT
  Sex: 0

DRUGS (1)
  1. TEMODAR [Suspect]
     Dosage: 140MG./TWO CAPSULES BY MOUTH EVERY DAY FOR FIVE DAYS
     Route: 048

REACTIONS (3)
  - Drug dose omission [Unknown]
  - Incorrect product storage [Unknown]
  - No adverse event [Unknown]
